FAERS Safety Report 10655535 (Version 1)
Quarter: 2014Q4

REPORT INFORMATION
  Report Type: Spontaneous
  Country: None (occurrence: None)
  Receive Date: 20141215
  Receipt Date: 20141215
  Transmission Date: 20150529
  Serious: Yes (Life-Threatening, Hospitalization)
  Sender: FDA-Public Use
  Company Number: None

PATIENT
  Age: 36 Year
  Sex: Male
  Weight: 68.04 kg

DRUGS (1)
  1. ALEVE [Suspect]
     Active Substance: NAPROXEN SODIUM
     Indication: HEADACHE
     Route: 048
     Dates: start: 20141205, end: 20141205

REACTIONS (9)
  - Loss of consciousness [None]
  - Fall [None]
  - Tunnel vision [None]
  - Dizziness [None]
  - Aggression [None]
  - Head injury [None]
  - Confusional state [None]
  - Seizure [None]
  - Headache [None]

NARRATIVE: CASE EVENT DATE: 20141205
